FAERS Safety Report 11044931 (Version 1)
Quarter: 2015Q2

REPORT INFORMATION
  Report Type: Spontaneous
  Country: FR (occurrence: FR)
  Receive Date: 20150417
  Receipt Date: 20150417
  Transmission Date: 20150821
  Serious: Yes (Hospitalization)
  Sender: FDA-Public Use
  Company Number: FR-009507513-1504FRA015043

PATIENT
  Age: 50 Year
  Sex: Female

DRUGS (6)
  1. CISPLATIN ACCORD [Concomitant]
     Active Substance: CISPLATIN
     Dosage: 160 MG, CYCLE
     Route: 042
     Dates: start: 20150307, end: 20150307
  2. EMEND [Suspect]
     Active Substance: APREPITANT
     Dosage: UNK
     Route: 048
     Dates: end: 201503
  3. MESNA. [Concomitant]
     Active Substance: MESNA
     Dosage: UNK
     Route: 065
     Dates: start: 201503, end: 201503
  4. IFOSFAMIDE. [Suspect]
     Active Substance: IFOSFAMIDE
     Dosage: 4800 MG/CYCLE
     Route: 042
     Dates: start: 20150308, end: 20150308
  5. IFOSFAMIDE. [Suspect]
     Active Substance: IFOSFAMIDE
     Dosage: 1000 MG
  6. DOXORUBICIN HYDROCHLORIDE. [Concomitant]
     Active Substance: DOXORUBICIN HYDROCHLORIDE
     Dosage: 96 MG, CYCLE
     Route: 042
     Dates: start: 20150307, end: 20150307

REACTIONS (1)
  - Encephalopathy [Recovered/Resolved]

NARRATIVE: CASE EVENT DATE: 20150308
